FAERS Safety Report 11093027 (Version 1)
Quarter: 2015Q2

REPORT INFORMATION
  Report Type: Spontaneous
  Country: US (occurrence: US)
  Receive Date: 20150506
  Receipt Date: 20150506
  Transmission Date: 20150821
  Serious: Yes (Death, Other)
  Sender: FDA-Public Use
  Company Number: US-BAYER-2015-179822

PATIENT
  Age: 68 Year
  Sex: Female
  Weight: 84.8 kg

DRUGS (18)
  1. ADEMPAS [Suspect]
     Active Substance: RIOCIGUAT
     Indication: PULMONARY ARTERIAL HYPERTENSION
     Dosage: 0.5MG, UNK
     Dates: start: 201408
  2. LETAIRIS [Suspect]
     Active Substance: AMBRISENTAN
     Indication: PRODUCT USED FOR UNKNOWN INDICATION
     Dosage: 10 MG, UNK
     Dates: start: 20121023
  3. LEVOTHYROXINE [Concomitant]
     Active Substance: LEVOTHYROXINE
     Dosage: UNK
     Dates: start: 20121102
  4. ACETAMINOPHEN W/HYDROCODONE [Concomitant]
     Active Substance: ACETAMINOPHEN\HYDROCODONE
     Dosage: UNK
     Dates: start: 20140113
  5. OXYGEN. [Concomitant]
     Active Substance: OXYGEN
  6. REMODULIN [Suspect]
     Active Substance: TREPROSTINIL
     Indication: PULMONARY ARTERIAL HYPERTENSION
     Dosage: 0.090 ?G/KG, CONT
     Route: 058
     Dates: start: 20121101
  7. REMODULIN [Suspect]
     Active Substance: TREPROSTINIL
     Indication: PULMONARY ARTERIAL HYPERTENSION
     Dosage: 0.092 ?G/KG, UNK
  8. SPIRONOLACTONE. [Concomitant]
     Active Substance: SPIRONOLACTONE
     Dosage: UNK
     Dates: start: 20130208
  9. POTASSIUM CHLORIDE. [Concomitant]
     Active Substance: POTASSIUM CHLORIDE
     Dosage: UNK
     Dates: start: 20130208
  10. BUPROPION [Concomitant]
     Active Substance: BUPROPION
     Dosage: UNK
     Dates: start: 20120912
  11. GABAPENTIN. [Concomitant]
     Active Substance: GABAPENTIN
     Dosage: UNK
     Dates: start: 20130311
  12. DIGOX [Concomitant]
     Active Substance: DIGOXIN
     Dosage: UNK
     Dates: start: 20130208
  13. SPIRIVA [Concomitant]
     Active Substance: TIOTROPIUM BROMIDE MONOHYDRATE
     Dosage: UNK
     Dates: start: 20130208
  14. REMODULIN [Suspect]
     Active Substance: TREPROSTINIL
     Indication: PULMONARY ARTERIAL HYPERTENSION
     Dosage: 0.090 ?G/KG, CONT
     Route: 058
     Dates: start: 20121102
  15. COUMADIN [Suspect]
     Active Substance: WARFARIN SODIUM
     Indication: PRODUCT USED FOR UNKNOWN INDICATION
     Dosage: 5 MG, UNK
  16. ASMANEX [Concomitant]
     Active Substance: MOMETASONE FUROATE
     Dosage: UNK
     Dates: start: 20131207
  17. FUROSEMIDE [FUROSEMIDE] [Concomitant]
     Dosage: UNK
     Dates: start: 20130208
  18. LOPERAMIDE [Concomitant]
     Active Substance: LOPERAMIDE
     Dosage: UNK
     Dates: start: 20130508

REACTIONS (19)
  - Pulmonary arterial hypertension [Fatal]
  - Headache [Unknown]
  - Muscle spasms [Not Recovered/Not Resolved]
  - Ear pain [Unknown]
  - Decreased appetite [Unknown]
  - Nausea [Not Recovered/Not Resolved]
  - Fatigue [Unknown]
  - Drug dose omission [None]
  - Diarrhoea [Not Recovered/Not Resolved]
  - Balance disorder [Unknown]
  - Tachycardia [Unknown]
  - Cataract [Unknown]
  - Contusion [Unknown]
  - Infusion site pain [Unknown]
  - Feeling abnormal [Not Recovered/Not Resolved]
  - Abdominal pain upper [Not Recovered/Not Resolved]
  - Nasal congestion [Unknown]
  - Hernia [Not Recovered/Not Resolved]
  - Right ventricular failure [Unknown]

NARRATIVE: CASE EVENT DATE: 201412
